FAERS Safety Report 24023627 (Version 2)
Quarter: 2024Q3

REPORT INFORMATION
  Report Type: Report from Study
  Country: CN (occurrence: CN)
  Receive Date: 20240627
  Receipt Date: 20240710
  Transmission Date: 20241016
  Serious: No
  Sender: ROCHE
  Company Number: CN-ROCHE-3385892

PATIENT
  Age: 58 Year
  Sex: Male
  Weight: 65.0 kg

DRUGS (1)
  1. ALECENSA [Suspect]
     Active Substance: ALECTINIB HYDROCHLORIDE
     Indication: Lung neoplasm malignant
     Dosage: 150 MG *56 CAPSULES *4 SMALL BOXES
     Route: 048
     Dates: start: 20230316

REACTIONS (1)
  - Constipation [Unknown]
